FAERS Safety Report 5257639-3 (Version None)
Quarter: 2007Q1

REPORT INFORMATION
  Report Type: 
  Country: None (occurrence: None)
  Receive Date: 20070307
  Receipt Date: 20070222
  Transmission Date: 20070707
  Serious: Yes (Other)
  Sender: FDA-Public Use
  Company Number: PHBS2007GR03533

PATIENT
  Age: 37 Year
  Sex: Female

DRUGS (1)
  1. CLOZAPINE [Suspect]
     Dosage: 350 MG, UNK

REACTIONS (13)
  - BLOOD DISORDER [None]
  - CATATONIA [None]
  - DRUG WITHDRAWAL SYNDROME [None]
  - EATING DISORDER [None]
  - HYPOKINESIA [None]
  - MUTISM [None]
  - NEGATIVISM [None]
  - POSTURING [None]
  - PSYCHOMOTOR HYPERACTIVITY [None]
  - PYREXIA [None]
  - STEREOTYPY [None]
  - STUPOR [None]
  - WAXY FLEXIBILITY [None]
